FAERS Safety Report 10853511 (Version 1)
Quarter: 2015Q1

REPORT INFORMATION
  Report Type: Spontaneous
  Country: US (occurrence: None)
  Receive Date: 20150218
  Receipt Date: 20150218
  Transmission Date: 20150721
  Serious: Yes (Other)
  Sender: FDA-Public Use
  Company Number: None

PATIENT
  Age: 39 Year
  Sex: Male
  Weight: 86.8 kg

DRUGS (2)
  1. CLOZAPINE 100 MG [Suspect]
     Active Substance: CLOZAPINE
     Indication: SCHIZOPHRENIA
     Route: 048
     Dates: start: 20120822
  2. CLOZAPINE 100 MG [Suspect]
     Active Substance: CLOZAPINE
     Indication: AFFECTIVE DISORDER
     Route: 048
     Dates: start: 20120822

REACTIONS (1)
  - Neutrophil count decreased [None]

NARRATIVE: CASE EVENT DATE: 20141013
